FAERS Safety Report 10018954 (Version 2)
Quarter: 2014Q1

REPORT INFORMATION
  Report Type: Report from Study
  Country: DE (occurrence: DE)
  Receive Date: 20140318
  Receipt Date: 20140328
  Transmission Date: 20141002
  Serious: Yes (Hospitalization)
  Sender: FDA-Public Use
  Company Number: DE-PFIZER INC-2014066215

PATIENT
  Age: 64 Year
  Sex: Female
  Weight: 71 kg

DRUGS (3)
  1. AROMASIN [Suspect]
     Indication: BREAST CANCER
     Dosage: 25 MG, DAILY
     Route: 048
     Dates: start: 20110617
  2. RIVAROXABAN [Concomitant]
     Indication: ANTICOAGULANT THERAPY
     Dosage: 20 MG, DAILY
     Route: 048
     Dates: start: 20130925
  3. PANTOPRAZOL [Concomitant]
     Indication: ABDOMINAL PAIN UPPER
     Dosage: 20 MG, DAILY
     Route: 048
     Dates: start: 20120604

REACTIONS (1)
  - Atrial fibrillation [Recovered/Resolved]
